FAERS Safety Report 5977710-8 (Version None)
Quarter: 2008Q4

REPORT INFORMATION
  Report Type: 
  Country: None (occurrence: None)
  Receive Date: 20081203
  Receipt Date: 20081121
  Transmission Date: 20090506
  Serious: Yes (Hospitalization)
  Sender: FDA-Public Use
  Company Number: JP-ROCHE-500243

PATIENT
  Sex: Male

DRUGS (13)
  1. DENOSINE IV [Suspect]
     Indication: PNEUMONIA CYTOMEGALOVIRAL
     Dosage: FORM REPORTED AS INFUSION.
     Route: 041
     Dates: start: 20060905, end: 20060912
  2. DENOSINE IV [Suspect]
     Route: 041
     Dates: start: 20060925, end: 20061003
  3. BACTRIM [Suspect]
     Route: 041
     Dates: start: 20060906, end: 20060910
  4. BACTRIM [Suspect]
     Route: 041
     Dates: start: 20060911, end: 20061002
  5. SOLU-MEDROL [Concomitant]
     Dosage: 09 SEP 2006 - 11 SEP 2006: 1 GRAM DAILY; 12 SEP 2006 -14 SEP 2006: 0.5 GRAM DAILY; 15 SEP 2006 - 17+
     Route: 041
     Dates: start: 20060909, end: 20060917
  6. VENOGLOBULIN [Concomitant]
     Dosage: DRUG NAME REPORTED AS KENKETSU VENOGLOBULIN-IH.
     Route: 041
     Dates: start: 20060913, end: 20060924
  7. IMMUNE GLOBULIN INTRAVENOUS (HUMAN) [Concomitant]
     Dosage: REPORTED DRUG NAME: GAMMA GLOBULIN. FORM: VIAL.
     Route: 051
     Dates: start: 20060101
  8. IMMUNE GLOBULIN INTRAVENOUS (HUMAN) [Concomitant]
     Route: 051
  9. IMMUNE GLOBULIN INTRAVENOUS (HUMAN) [Concomitant]
     Route: 051
     Dates: start: 20060913, end: 20060924
  10. FUNGUARD [Concomitant]
     Route: 041
     Dates: start: 20060905, end: 20060910
  11. CMV IMMUNE GLOBULIN [Concomitant]
     Route: 042
     Dates: start: 20060905
  12. CIPROXAN [Concomitant]
     Route: 041
     Dates: start: 20060907, end: 20060909
  13. COTRIM [Concomitant]
     Route: 048
     Dates: start: 20060904, end: 20060909

REACTIONS (2)
  - BONE MARROW FAILURE [None]
  - RENAL IMPAIRMENT [None]
